FAERS Safety Report 6261332-8 (Version None)
Quarter: 2009Q3

REPORT INFORMATION
  Report Type: 
  Country: None (occurrence: None)
  Receive Date: 20090709
  Receipt Date: 20090629
  Transmission Date: 20100115
  Serious: Yes (Other)
  Sender: FDA-Public Use
  Company Number: BR-ROCHE-641590

PATIENT
  Sex: Female
  Weight: 2.5 kg

DRUGS (2)
  1. XENICAL [Suspect]
     Indication: OBESITY
     Dosage: START DATE: 2001-2002
     Route: 064
     Dates: start: 20010101
  2. MICROVLAR [Concomitant]
     Indication: CONTRACEPTION

REACTIONS (2)
  - NORMAL NEWBORN [None]
  - SMALL FOR DATES BABY [None]
